FAERS Safety Report 7389151-X (Version None)
Quarter: 2011Q2

REPORT INFORMATION
  Report Type: 
  Country: None (occurrence: None)
  Receive Date: 20110401
  Receipt Date: 20110322
  Transmission Date: 20111010
  Serious: Yes (Life-Threatening, Hospitalization)
  Sender: FDA-Public Use
  Company Number: SE-SANOFI-AVENTIS-2010SA066291

PATIENT
  Age: 71 Year
  Sex: Male

DRUGS (6)
  1. CORDARONE [Concomitant]
     Route: 048
  2. WARAN [Concomitant]
  3. SIMVASTATIN [Concomitant]
     Route: 065
  4. ENALAPRIL MALEATE [Concomitant]
  5. MULTAQ [Suspect]
     Indication: ATRIAL FIBRILLATION
     Route: 048
     Dates: start: 20100917
  6. AMLODIPINE BESILATE [Concomitant]
     Route: 065

REACTIONS (5)
  - CARDIAC ARREST [None]
  - ATRIOVENTRICULAR BLOCK FIRST DEGREE [None]
  - VENTRICULAR TACHYARRHYTHMIA [None]
  - VENTRICULAR EXTRASYSTOLES [None]
  - OFF LABEL USE [None]
